FAERS Safety Report 21701841 (Version 3)
Quarter: 2023Q1

REPORT INFORMATION
  Report Type: Spontaneous
  Country: US (occurrence: US)
  Receive Date: 20221208
  Receipt Date: 20230109
  Transmission Date: 20230418
  Serious: Yes (Other)
  Sender: FDA-Public Use
  Company Number: US-ALKERMES INC.-ALK-2022-005841

PATIENT

DRUGS (1)
  1. LYBALVI [Suspect]
     Active Substance: OLANZAPINE\SAMIDORPHAN L-MALATE
     Indication: Bipolar I disorder
     Dosage: UNK, QD
     Route: 048

REACTIONS (16)
  - Deafness [Unknown]
  - Mania [Recovering/Resolving]
  - Insomnia [Recovering/Resolving]
  - Hallucination [Recovering/Resolving]
  - Vertigo [Recovering/Resolving]
  - Intentional dose omission [Unknown]
  - Muscular weakness [Recovering/Resolving]
  - Dark circles under eyes [Unknown]
  - Feeling abnormal [Recovering/Resolving]
  - Pallor [Unknown]
  - Emotional distress [Recovering/Resolving]
  - Delusional perception [Recovering/Resolving]
  - Aggression [Recovering/Resolving]
  - Overwork [Unknown]
  - Muscle spasms [Unknown]
  - Fatigue [Recovering/Resolving]
